FAERS Safety Report 19373388 (Version 1)
Quarter: 2021Q2

REPORT INFORMATION
  Report Type: Spontaneous
  Country: US (occurrence: US)
  Receive Date: 20210604
  Receipt Date: 20210604
  Transmission Date: 20210717
  Serious: Yes (Hospitalization)
  Sender: FDA-Public Use
  Company Number: None

PATIENT
  Sex: Female

DRUGS (1)
  1. COPAXONE [Suspect]
     Active Substance: GLATIRAMER ACETATE
     Indication: MULTIPLE SCLEROSIS
     Route: 058
     Dates: start: 20081002

REACTIONS (7)
  - Blood pressure decreased [None]
  - Sepsis [None]
  - Unresponsive to stimuli [None]
  - Nephrolithiasis [None]
  - Clostridium difficile infection [None]
  - Diarrhoea [None]
  - Somnolence [None]
